FAERS Safety Report 25774575 (Version 2)
Quarter: 2025Q3

REPORT INFORMATION
  Report Type: Report from Study
  Country: US (occurrence: US)
  Receive Date: 20250908
  Receipt Date: 20250912
  Transmission Date: 20251021
  Serious: Yes (Other)
  Sender: MALLINCKRODT
  Company Number: US-MALLINCKRODT-MNK202505332

PATIENT
  Age: 76 Year
  Sex: Female

DRUGS (4)
  1. CORTICOTROPIN [Suspect]
     Active Substance: CORTICOTROPIN
     Indication: Dermatomyositis
  2. MYCOPHENOLIC ACID [Concomitant]
     Active Substance: MYCOPHENOLIC ACID
  3. HYDROXYCHLOROQUINE [Concomitant]
     Active Substance: HYDROXYCHLOROQUINE
  4. CARBAZOLE [Concomitant]
     Active Substance: CARBAZOLE

REACTIONS (7)
  - Tooth extraction [Not Recovered/Not Resolved]
  - Alopecia [Unknown]
  - Pruritus [Unknown]
  - Rash [Unknown]
  - Photosensitivity reaction [Unknown]
  - Oral discomfort [Unknown]
  - Injection site swelling [Unknown]

NARRATIVE: CASE EVENT DATE: 20250902
